FAERS Safety Report 6898904-3 (Version None)
Quarter: 2010Q3

REPORT INFORMATION
  Report Type: 
  Country: None (occurrence: None)
  Receive Date: 20100802
  Receipt Date: 20071218
  Transmission Date: 20110219
  Serious: Yes (Other)
  Sender: FDA-Public Use
  Company Number: US-PFIZER INC-2007107604

PATIENT
  Sex: Female
  Weight: 181.81 kg

DRUGS (8)
  1. LYRICA [Suspect]
     Indication: DIABETIC NEUROPATHY
     Dates: start: 20071001
  2. NEXIUM [Concomitant]
  3. SENSIPAR [Concomitant]
  4. STARLIX [Concomitant]
  5. LEVOTHYROXINE SODIUM [Concomitant]
  6. METOCLOPRAMIDE [Concomitant]
  7. TRIOBE [Concomitant]
     Dates: start: 20071001
  8. RENAGEL [Concomitant]

REACTIONS (2)
  - OEDEMA PERIPHERAL [None]
  - WEIGHT INCREASED [None]
